FAERS Safety Report 20719222 (Version 2)
Quarter: 2024Q1

REPORT INFORMATION
  Report Type: Report from Study
  Country: BE (occurrence: BE)
  Receive Date: 20220418
  Receipt Date: 20240322
  Transmission Date: 20240410
  Serious: Yes (Death, Hospitalization, Other)
  Sender: FDA-Public Use
  Company Number: BE-ABBVIE-21K-013-4162293-00

PATIENT
  Age: 59 Year
  Sex: Male

DRUGS (7)
  1. HUMIRA [Suspect]
     Active Substance: ADALIMUMAB
     Indication: Colitis ulcerative
     Route: 058
     Dates: start: 20090320, end: 20090320
  2. HUMIRA [Suspect]
     Active Substance: ADALIMUMAB
     Route: 058
     Dates: start: 20090402, end: 20090402
  3. HUMIRA [Suspect]
     Active Substance: ADALIMUMAB
     Route: 058
     Dates: start: 20090416, end: 20090430
  4. HUMIRA [Suspect]
     Active Substance: ADALIMUMAB
     Route: 058
     Dates: start: 20090507, end: 20101118
  5. HUMIRA [Suspect]
     Active Substance: ADALIMUMAB
     Route: 058
     Dates: start: 201111, end: 20211206
  6. CIPROFLOXACIN [Concomitant]
     Active Substance: CIPROFLOXACIN
     Indication: Pyuria
     Route: 048
     Dates: start: 20211108, end: 20211113
  7. IMODIUM [Concomitant]
     Active Substance: LOPERAMIDE HYDROCHLORIDE
     Indication: Colitis ulcerative
     Dosage: TIME INTERVAL: AS NECESSARY
     Route: 048
     Dates: start: 2008

REACTIONS (1)
  - Adenocarcinoma of colon [Fatal]

NARRATIVE: CASE EVENT DATE: 20211113
